FAERS Safety Report 13093334 (Version 3)
Quarter: 2017Q1

REPORT INFORMATION
  Report Type: Spontaneous
  Country: IT (occurrence: IT)
  Receive Date: 20170106
  Receipt Date: 20170119
  Transmission Date: 20170428
  Serious: Yes (Other)
  Sender: FDA-Public Use
  Company Number: IT-TEVA-726038ACC

PATIENT
  Age: 45 Year
  Sex: Male

DRUGS (1)
  1. COPAXONE [Suspect]
     Active Substance: GLATIRAMER ACETATE
     Dosage: 20 MG/ML
     Dates: start: 2001, end: 2010

REACTIONS (3)
  - Multiple sclerosis [Unknown]
  - Gastric haemorrhage [Recovered/Resolved]
  - Malignant polyp [Recovered/Resolved]

NARRATIVE: CASE EVENT DATE: 2010
